FAERS Safety Report 8789861 (Version 3)
Quarter: 2012Q4

REPORT INFORMATION
  Report Type: 
  Country: JP (occurrence: JP)
  Receive Date: 20120917
  Receipt Date: 20121005
  Transmission Date: 20130627
  Serious: Yes (Hospitalization)
  Sender: FDA-Public Use
  Company Number: JP-ABBOTT-12P-087-0978196-00

PATIENT
  Age: 68 Year
  Sex: Male

DRUGS (6)
  1. KLARICID [Suspect]
     Indication: BRONCHITIS
     Route: 048
     Dates: start: 20110719, end: 20110720
  2. GENINAX [Suspect]
     Indication: BRONCHITIS
     Route: 048
     Dates: start: 20110720, end: 20110728
  3. L-CARBOCISTEINE [Concomitant]
     Indication: PRODUCTIVE COUGH
     Route: 048
     Dates: start: 20110719, end: 20110729
  4. DEXTROMETHORPHAN HYDROBROMIDE HYDRATE [Concomitant]
     Indication: ANTITUSSIVE THERAPY
     Route: 048
     Dates: start: 20110719, end: 20110729
  5. HUSCODE [Concomitant]
     Indication: ANTITUSSIVE THERAPY
     Route: 048
     Dates: start: 20110719, end: 20110729
  6. SILODOSIN [Concomitant]
     Indication: DYSURIA
     Route: 048
     Dates: start: 20110520, end: 20110729

REACTIONS (3)
  - Erythema multiforme [Recovered/Resolved]
  - Hyperthermia [Recovered/Resolved]
  - Cough [Unknown]
